FAERS Safety Report 13543097 (Version 1)
Quarter: 2017Q2

REPORT INFORMATION
  Report Type: Spontaneous
  Country: US (occurrence: US)
  Receive Date: 20170512
  Receipt Date: 20170512
  Transmission Date: 20170830
  Serious: Yes (Hospitalization, Disabling)
  Sender: FDA-Public Use
  Company Number: None

PATIENT
  Age: 64 Year
  Sex: Male
  Weight: 113.4 kg

DRUGS (12)
  1. COSENTYX [Suspect]
     Active Substance: SECUKINUMAB
     Indication: PSORIASIS
     Dosage: ?          OTHER FREQUENCY:1 X MONTH;OTHER ROUTE:SUBCUTANEOUS?
     Route: 058
     Dates: start: 20160601, end: 20170101
  2. MELATONIN [Concomitant]
     Active Substance: MELATONIN
  3. FELODIPINE. [Concomitant]
     Active Substance: FELODIPINE
  4. DAPTOMYCIN. [Concomitant]
     Active Substance: DAPTOMYCIN
  5. ACIDOPHILLUS [Concomitant]
  6. PIOGLITAZONE. [Concomitant]
     Active Substance: PIOGLITAZONE
  7. CUBICIN [Concomitant]
     Active Substance: DAPTOMYCIN
  8. COMBIGAN [Concomitant]
     Active Substance: BRIMONIDINE TARTRATE\TIMOLOL MALEATE
  9. NORCO [Concomitant]
     Active Substance: ACETAMINOPHEN\HYDROCODONE BITARTRATE
  10. SPIRONLACTONE [Concomitant]
  11. MELOXICAM. [Concomitant]
     Active Substance: MELOXICAM
  12. JANUVIA [Concomitant]
     Active Substance: SITAGLIPTIN PHOSPHATE

REACTIONS (2)
  - Osteomyelitis [None]
  - Staphylococcal infection [None]

NARRATIVE: CASE EVENT DATE: 20170311
